FAERS Safety Report 9078657 (Version 2)
Quarter: 2013Q2

REPORT INFORMATION
  Report Type: Spontaneous
  Country: US (occurrence: US)
  Receive Date: 20130130
  Receipt Date: 20130501
  Transmission Date: 20140414
  Serious: Yes (Hospitalization)
  Sender: FDA-Public Use
  Company Number: US-ASTRAZENECA-2013SE04823

PATIENT
  Age: 54 Day
  Sex: Male

DRUGS (2)
  1. SYNAGIS [Suspect]
     Route: 030
     Dates: start: 20130118
  2. SYNAGIS [Suspect]
     Route: 030
     Dates: start: 20130221

REACTIONS (1)
  - Influenza [Recovered/Resolved]
